FAERS Safety Report 9501714 (Version 2)
Quarter: 2013Q3

REPORT INFORMATION
  Report Type: Spontaneous
  Country: US (occurrence: None)
  Receive Date: 20130107
  Receipt Date: 20130724
  Transmission Date: 20140515
  Serious: Yes (Other)
  Sender: FDA-Public Use
  Company Number: PHEH2012US022612

PATIENT
  Age: 45 Year
  Sex: Female
  Weight: 77.6 kg

DRUGS (8)
  1. GILENYA [Suspect]
     Indication: MULTIPLE SCLEROSIS
     Dosage: 0.5 MG, QD, ORAL
     Route: 048
     Dates: start: 20121030
  2. PROVIGIL (MODAFINIL) [Concomitant]
  3. AMBIEN (ZOLPIDEMA TARTRATE) [Concomitant]
  4. ADVAIR (FLUTICASONE PROPIONATE, SALMETEROL XINAFOATE) [Concomitant]
  5. IBUPROFEN (IBUPROFEN) [Concomitant]
  6. CALCIFEROL (ERGOCALCIFEROL) [Concomitant]
  7. PROVENTIL (SALBUTAMOL SULFATE) [Concomitant]
  8. WELLBUTRIN (BUPROPION HYDROCHLORIDE) [Concomitant]

REACTIONS (1)
  - Heart rate decreased [None]
